FAERS Safety Report 4531721-8 (Version None)
Quarter: 2004Q4

REPORT INFORMATION
  Report Type: 
  Country: None (occurrence: None)
  Receive Date: 20041206
  Receipt Date: 20040922
  Transmission Date: 20050328
  Serious: No
  Sender: FDA-Public Use
  Company Number: USA040979050

PATIENT
  Sex: Male

DRUGS (5)
  1. CYMBALTA [Suspect]
     Indication: DEPRESSION
     Dosage: 60 MG DAY
     Dates: end: 20040901
  2. NEXIUM [Concomitant]
  3. STRESSTABS [Concomitant]
  4. TRAZADONE (TRAZODONE) [Concomitant]
  5. FIBERCON (POLYCARBOPHIL CALCIUM) [Concomitant]

REACTIONS (3)
  - EJACULATION FAILURE [None]
  - INFREQUENT BOWEL MOVEMENTS [None]
  - INSOMNIA [None]
